FAERS Safety Report 19665544 (Version 4)
Quarter: 2021Q3

REPORT INFORMATION
  Report Type: Report from Study
  Country: None (occurrence: CH)
  Receive Date: 20210806
  Receipt Date: 20210811
  Transmission Date: 20211014
  Serious: Yes (Death, Hospitalization, Other)
  Sender: FDA-Public Use
  Company Number: CH-ABBVIE-21K-151-4017948-00

PATIENT
  Age: 81 Year
  Sex: Female

DRUGS (2)
  1. DUODOPA [Suspect]
     Active Substance: CARBIDOPA\LEVODOPA
     Indication: PARKINSON^S DISEASE
     Dosage: 1 CASSETTE / DAY
     Route: 050
     Dates: start: 20180705
  2. DUODOPA [Suspect]
     Active Substance: CARBIDOPA\LEVODOPA
     Dosage: MD: 6 ML, CRD: 2.3 ML/H, CRN: 0 ML/H, ED: 1.5 ML
     Route: 050
     Dates: start: 20210120

REACTIONS (13)
  - Hypophagia [Not Recovered/Not Resolved]
  - Parkinson^s disease [Unknown]
  - Freezing phenomenon [Unknown]
  - General physical health deterioration [Not Recovered/Not Resolved]
  - Somnolence [Not Recovered/Not Resolved]
  - Death [Fatal]
  - Fluid intake reduced [Not Recovered/Not Resolved]
  - Pain [Unknown]
  - Feeding disorder [Not Recovered/Not Resolved]
  - Akinesia [Not Recovered/Not Resolved]
  - Palliative care [Not Recovered/Not Resolved]
  - Urinary tract infection [Not Recovered/Not Resolved]
  - Therapeutic product effect incomplete [Unknown]

NARRATIVE: CASE EVENT DATE: 2021
